FAERS Safety Report 23048271 (Version 1)
Quarter: 2023Q4

REPORT INFORMATION
  Report Type: Spontaneous
  Country: US (occurrence: US)
  Receive Date: 20231010
  Receipt Date: 20231010
  Transmission Date: 20240109
  Serious: No
  Sender: FDA-Public Use
  Company Number: US-BEH-2023163833

PATIENT
  Age: 29 Year
  Sex: Female

DRUGS (6)
  1. HIZENTRA [Suspect]
     Active Substance: HUMAN IMMUNOGLOBULIN G
     Indication: Chronic inflammatory demyelinating polyradiculoneuropathy
     Dosage: 30 GRAM, QW
     Route: 058
     Dates: start: 202309
  2. DIPHENHYDRAMINE [Concomitant]
     Active Substance: DIPHENHYDRAMINE
     Indication: Hypersensitivity
  3. DIPHENHYDRAMINE [Concomitant]
     Active Substance: DIPHENHYDRAMINE
     Indication: Hypersensitivity
  4. FAMOTIDINE [Concomitant]
     Active Substance: FAMOTIDINE
  5. ILARIS [Concomitant]
     Active Substance: CANAKINUMAB
  6. NORTHERA [Concomitant]
     Active Substance: DROXIDOPA

REACTIONS (7)
  - Presyncope [Unknown]
  - Nausea [Unknown]
  - Headache [Unknown]
  - Abdominal distension [Unknown]
  - Back pain [Unknown]
  - Infusion site pain [Unknown]
  - Pruritus [Unknown]

NARRATIVE: CASE EVENT DATE: 20230901
